FAERS Safety Report 6922668-8 (Version None)
Quarter: 2010Q3

REPORT INFORMATION
  Report Type: 
  Country: None (occurrence: None)
  Receive Date: 20100813
  Receipt Date: 20100802
  Transmission Date: 20110219
  Serious: Yes (Other)
  Sender: FDA-Public Use
  Company Number: PHHY2010DE51269

PATIENT
  Sex: Male

DRUGS (1)
  1. STARLIX [Suspect]
     Dosage: 1 DF, QD
     Route: 048
     Dates: start: 20011129, end: 20031001

REACTIONS (2)
  - DRUG TOXICITY [None]
  - HEPATITIS [None]
